FAERS Safety Report 12812444 (Version 2)
Quarter: 2016Q4

REPORT INFORMATION
  Report Type: Report from Study
  Country: CA (occurrence: CA)
  Receive Date: 20161005
  Receipt Date: 20161228
  Transmission Date: 20170207
  Serious: Yes (Disabling)
  Sender: FDA-Public Use
  Company Number: CA-HLSUS-2016-CA-000346

PATIENT
  Age: 23 Year
  Sex: Male
  Weight: 100 kg

DRUGS (2)
  1. CLOZARIL [Suspect]
     Active Substance: CLOZAPINE
     Indication: SCHIZOAFFECTIVE DISORDER
     Dosage: 100 TO 300 MG AT BED TIME
     Route: 048
     Dates: start: 201106, end: 201608
  2. DIVALPROEX SODIUM. [Concomitant]
     Active Substance: DIVALPROEX SODIUM
     Indication: SCHIZOAFFECTIVE DISORDER
     Dosage: 250MG AM, 750MG HS
     Route: 048
     Dates: start: 2009

REACTIONS (5)
  - Sedation [Recovered/Resolved with Sequelae]
  - Weight increased [Unknown]
  - Treatment noncompliance [Unknown]
  - Fatigue [Recovered/Resolved with Sequelae]
  - Drooling [Recovered/Resolved with Sequelae]

NARRATIVE: CASE EVENT DATE: 201106
